FAERS Safety Report 4400601-0 (Version None)
Quarter: 2004Q3

REPORT INFORMATION
  Report Type: 
  Country: None (occurrence: None)
  Receive Date: 20040716
  Receipt Date: 20040716
  Transmission Date: 20050211
  Serious: Yes (Hospitalization)
  Sender: FDA-Public Use
  Company Number: None

PATIENT
  Sex: Male

DRUGS (2)
  1. GATIFLOXACIN [Suspect]
     Indication: VENOUS OPERATION
     Dosage: 400 MG QD
     Route: 048
     Dates: start: 20040324
  2. GATIFLOXACIN [Suspect]
     Indication: WOUND TREATMENT
     Dosage: 400 MG QD
     Route: 048
     Dates: start: 20040324

REACTIONS (1)
  - HYPOGLYCAEMIA [None]
